FAERS Safety Report 12266518 (Version 1)
Quarter: 2016Q2

REPORT INFORMATION
  Report Type: Spontaneous
  Country: AU (occurrence: AU)
  Receive Date: 20160414
  Receipt Date: 20160414
  Transmission Date: 20160815
  Serious: Yes (Other)
  Sender: FDA-Public Use
  Company Number: AU-HOSPIRA-3240443

PATIENT

DRUGS (2)
  1. ANZATAX                            /00285201/ [Suspect]
     Active Substance: CLONAZEPAM
     Indication: CHEMOTHERAPY
     Dosage: 100 MG VIAL X 1, CYCLE 3
     Route: 041
     Dates: start: 20160318
  2. ANZATAX                            /00285201/ [Suspect]
     Active Substance: CLONAZEPAM
     Indication: CHEMOTHERAPY
     Dosage: 150 MG VIAL X 2, CYCLE 3
     Route: 041
     Dates: start: 20160318

REACTIONS (3)
  - Flushing [Recovered/Resolved]
  - Dyspnoea [Recovered/Resolved]
  - Palpitations [Recovered/Resolved]

NARRATIVE: CASE EVENT DATE: 20160318
